FAERS Safety Report 4488765-4 (Version None)
Quarter: 2004Q4

REPORT INFORMATION
  Report Type: 
  Country: None (occurrence: None)
  Receive Date: 20041029
  Receipt Date: 20041019
  Transmission Date: 20050328
  Serious: Yes (Life-Threatening, Hospitalization)
  Sender: FDA-Public Use
  Company Number: JP-JNJFOC-20041005650

PATIENT
  Sex: Male
  Weight: 48.5 kg

DRUGS (8)
  1. REMICADE [Suspect]
     Indication: CROHN'S DISEASE
     Dosage: 250 MG
     Route: 042
  2. RHEUMATREX [Concomitant]
  3. PENTASA [Concomitant]
     Indication: CROHN'S DISEASE
     Route: 049
  4. PREDONIN [Concomitant]
     Indication: CROHN'S DISEASE
     Dosage: 5-10 MG/DAY
     Route: 049
  5. FERO-GRADUMET [Concomitant]
     Dosage: 2 ?/DAY
     Route: 049
  6. ELENTAL [Concomitant]
  7. ELENTAL [Concomitant]
  8. ENTERAL NUTRITION [Concomitant]

REACTIONS (4)
  - ARTHRALGIA [None]
  - ASTHENIA [None]
  - DIFFICULTY IN WALKING [None]
  - PAIN [None]
